FAERS Safety Report 15595313 (Version 2)
Quarter: 2018Q4

REPORT INFORMATION
  Report Type: Spontaneous
  Country: JP (occurrence: JP)
  Receive Date: 20181107
  Receipt Date: 20181226
  Transmission Date: 20190205
  Serious: Yes (Life-Threatening, Other)
  Sender: FDA-Public Use
  Company Number: JP-BRISTOL-MYERS SQUIBB COMPANY-BMS-2018-103734

PATIENT
  Age: 94 Year
  Sex: Male
  Weight: 67 kg

DRUGS (1)
  1. ELIQUIS [Suspect]
     Active Substance: APIXABAN
     Indication: CEREBROVASCULAR ACCIDENT PROPHYLAXIS
     Dosage: 2.5 MG, BID
     Route: 065
     Dates: start: 20160609, end: 20170608

REACTIONS (3)
  - Anaemia [Recovered/Resolved]
  - Colon cancer [Not Recovered/Not Resolved]
  - Occult blood [Not Recovered/Not Resolved]

NARRATIVE: CASE EVENT DATE: 20170517
